FAERS Safety Report 9696283 (Version 2)
Quarter: 2013Q4

REPORT INFORMATION
  Report Type: Report from Study
  Country: US (occurrence: US)
  Receive Date: 20131119
  Receipt Date: 20131122
  Transmission Date: 20140711
  Serious: Yes (Other)
  Sender: FDA-Public Use
  Company Number: US-ABBVIE-13P-163-1170788-00

PATIENT
  Age: 23 Year
  Sex: Female

DRUGS (2)
  1. NORVIR [Suspect]
     Indication: ANTIRETROVIRAL THERAPY
     Route: 048
     Dates: start: 20120224
  2. PREZISTA [Suspect]
     Indication: ANTIRETROVIRAL THERAPY
     Dosage: 1200 MG DAILY
     Route: 048
     Dates: start: 20120224

REACTIONS (2)
  - Abortion induced [Unknown]
  - Alpha 1 foetoprotein abnormal [Unknown]
